FAERS Safety Report 8609730-9 (Version None)
Quarter: 2012Q3

REPORT INFORMATION
  Report Type: 
  Country: None (occurrence: None)
  Receive Date: 20120821
  Receipt Date: 20120816
  Transmission Date: 20120928
  Serious: Yes (Other)
  Sender: FDA-Public Use
  Company Number: CA-ABBOTT-12P-028-0969806-00

PATIENT
  Age: 18 Year
  Sex: Female
  Weight: 64 kg

DRUGS (5)
  1. HUMIRA [Suspect]
     Indication: ANKYLOSING SPONDYLITIS
     Route: 058
     Dates: start: 20120523
  2. PROTON PUMP INHIBITORS [Concomitant]
     Indication: GASTRIC DISORDER
  3. PROTON PUMP INHIBITORS [Concomitant]
     Indication: PROPHYLAXIS
  4. CELEBREX [Concomitant]
     Indication: PRODUCT USED FOR UNKNOWN INDICATION
  5. ALESSE [Concomitant]
     Indication: PRODUCT USED FOR UNKNOWN INDICATION

REACTIONS (2)
  - GINGIVAL RECESSION [None]
  - GINGIVAL BLEEDING [None]
